FAERS Safety Report 8464233-X (Version None)
Quarter: 2012Q2

REPORT INFORMATION
  Report Type: 
  Country: None (occurrence: None)
  Receive Date: 20120625
  Receipt Date: 20120619
  Transmission Date: 20120825
  Serious: Yes (Other)
  Sender: FDA-Public Use
  Company Number: CA-ROCHE-1024169

PATIENT
  Sex: Female
  Weight: 64 kg

DRUGS (11)
  1. XOLAIR [Suspect]
     Indication: ASTHMA
     Route: 058
     Dates: start: 20101017
  2. SYMBICORT [Concomitant]
  3. VENTOLIN [Concomitant]
  4. ZOPICLONE [Concomitant]
  5. MAXERAN [Concomitant]
  6. EPIPEN [Concomitant]
  7. PANTOPRAZOLE SODIUM [Concomitant]
  8. REACTINE (CANADA) [Concomitant]
  9. SPIRIVA [Concomitant]
  10. SINGULAIR [Concomitant]
  11. DICLECTIN [Concomitant]

REACTIONS (4)
  - NORMAL NEWBORN [None]
  - MATERNAL EXPOSURE DURING PREGNANCY [None]
  - HAEMATOMA [None]
  - GESTATIONAL DIABETES [None]
